FAERS Safety Report 4358329-1 (Version None)
Quarter: 2004Q2

REPORT INFORMATION
  Report Type: 
  Country: None (occurrence: None)
  Receive Date: 20040512
  Receipt Date: 20040512
  Transmission Date: 20050107
  Serious: Yes (Hospitalization)
  Sender: FDA-Public Use
  Company Number: None

PATIENT
  Age: 73 Year
  Sex: Female
  Weight: 67 kg

DRUGS (7)
  1. PROCRIT 40,000U/CC [Suspect]
     Indication: ANAEMIA
     Dosage: 30,000U SQ
     Route: 058
     Dates: start: 20040322
  2. PROCRIT 40,000U/CC [Suspect]
     Indication: CHEMOTHERAPY
     Dosage: 30,000U SQ
     Route: 058
     Dates: start: 20040322
  3. COUMADIN [Suspect]
     Indication: ATRIAL FIBRILLATION
     Dosage: 2 MG PO
     Route: 048
     Dates: start: 20040315, end: 20040420
  4. CAMPTOSAR [Concomitant]
  5. LEUCOVORIN CALCIUM [Concomitant]
  6. FLUOROURACIL [Concomitant]
  7. CARTIA XT [Concomitant]

REACTIONS (3)
  - ANAEMIA [None]
  - FAECAL OCCULT BLOOD POSITIVE [None]
  - INTERNATIONAL NORMALISED RATIO INCREASED [None]
